FAERS Safety Report 23743076 (Version 1)
Quarter: 2024Q2

REPORT INFORMATION
  Report Type: Report from Study
  Country: ID (occurrence: None)
  Receive Date: 20240415
  Receipt Date: 20240415
  Transmission Date: 20240716
  Serious: Yes (Death)
  Sender: FDA-Public Use
  Company Number: 2019SE46277

PATIENT
  Sex: Female

DRUGS (9)
  1. TAGRISSO [Suspect]
     Active Substance: OSIMERTINIB
     Indication: Non-small cell lung cancer
     Route: 048
     Dates: start: 20190225
  2. KALNEX [Concomitant]
     Dosage: SIGNA PRO RENATA (AS NEEDED)
  3. ESTAZOLAM [Concomitant]
     Active Substance: ESTAZOLAM
     Dosage: SIGNA PRO RENATA (AS NEEDED) 1 TABLET
  4. CODEINE [Concomitant]
     Active Substance: CODEINE
  5. ALBUTEROL [Concomitant]
     Active Substance: ALBUTEROL
  6. DEXTAMIN [Concomitant]
  7. ATIVAN [Concomitant]
     Active Substance: LORAZEPAM
  8. FENTANYL [Concomitant]
     Active Substance: FENTANYL\FENTANYL CITRATE
     Dosage: SIGNA PRO RENATA (AS NEEDED)
  9. ANALSIK [Concomitant]
     Dosage: THREE TIMES A DAY

REACTIONS (13)
  - Tremor [Fatal]
  - Urticaria [Fatal]
  - Erythema [Unknown]
  - Cough [Not Recovered/Not Resolved]
  - Dyspnoea [Unknown]
  - Vomiting [Recovering/Resolving]
  - Diarrhoea [Recovering/Resolving]
  - Decreased appetite [Unknown]
  - Asthenia [Unknown]
  - Weight decreased [Unknown]
  - Dizziness [Unknown]
  - Feeling abnormal [Unknown]
  - Off label use [Not Recovered/Not Resolved]
